FAERS Safety Report 16168273 (Version 1)
Quarter: 2019Q2

REPORT INFORMATION
  Report Type: Report from Study
  Country: CN (occurrence: CN)
  Receive Date: 20190408
  Receipt Date: 20190408
  Transmission Date: 20190711
  Serious: Yes (Hospitalization)
  Sender: FDA-Public Use
  Company Number: CN-ASTELLAS-2019US014053

PATIENT
  Age: 79 Year
  Sex: Female

DRUGS (1)
  1. ERLOTINIB [Suspect]
     Active Substance: ERLOTINIB
     Indication: NON-SMALL CELL LUNG CANCER
     Dosage: 150 MG, ONCE DAILY
     Route: 048
     Dates: start: 20170503

REACTIONS (8)
  - Retinal haemorrhage [Unknown]
  - Rash [Unknown]
  - Pain in extremity [Unknown]
  - Diarrhoea [Unknown]
  - Paronychia [Unknown]
  - Hypersensitivity [Unknown]
  - Retching [Unknown]
  - Tremor [Unknown]
